FAERS Safety Report 7273055-7 (Version None)
Quarter: 2011Q1

REPORT INFORMATION
  Report Type: 
  Country: None (occurrence: None)
  Receive Date: 20110203
  Receipt Date: 20110125
  Transmission Date: 20110831
  Serious: Yes (Hospitalization)
  Sender: FDA-Public Use
  Company Number: JP-B.I. PHARMACEUTICALS,INC./RIDGEFIELD-2011-DE-00746GD

PATIENT
  Sex: Male

DRUGS (4)
  1. BUP-4 [Concomitant]
  2. PANTOSIN [Concomitant]
  3. MAGNESIUM OXIDE [Concomitant]
  4. MOBIC [Suspect]
     Indication: BACK PAIN
     Dosage: 10 MG
     Route: 048
     Dates: start: 20000101

REACTIONS (4)
  - INTESTINAL STENOSIS [None]
  - ILEUS [None]
  - HAEMATOCHEZIA [None]
  - ANAEMIA [None]
